FAERS Safety Report 11714922 (Version 1)
Quarter: 2015Q4

REPORT INFORMATION
  Report Type: Spontaneous
  Country: US (occurrence: US)
  Receive Date: 20151109
  Receipt Date: 20151109
  Transmission Date: 20160304
  Serious: Yes (Hospitalization, Other)
  Sender: FDA-Public Use
  Company Number: US-GLAXOSMITHKLINE-US2015GSK158859

PATIENT
  Age: 32 Year
  Sex: Female

DRUGS (1)
  1. GLYCINE. [Suspect]
     Active Substance: GLYCINE
     Indication: PRODUCT USED FOR UNKNOWN INDICATION
     Dosage: UNK, 6L  IV GLYCINE IRRIGATION FLUID
     Route: 042

REACTIONS (17)
  - Hypoventilation [Unknown]
  - Hypotension [Unknown]
  - Hypocalcaemia [Unknown]
  - Blood osmolarity decreased [Unknown]
  - Acute pulmonary oedema [Unknown]
  - Hyperammonaemia [Unknown]
  - Bradycardia [Unknown]
  - Dyskinesia [Unknown]
  - Brain oedema [Recovered/Resolved]
  - Hypothermia [Unknown]
  - Blood sodium abnormal [Unknown]
  - Brain herniation [Recovered/Resolved]
  - Depression [Recovered/Resolved]
  - Blood lactic acid increased [Unknown]
  - Hypomagnesaemia [Unknown]
  - Infusion related reaction [Unknown]
  - Accidental exposure to product [Unknown]
